FAERS Safety Report 13641358 (Version 2)
Quarter: 2017Q2

REPORT INFORMATION
  Report Type: Spontaneous
  Country: BR (occurrence: BR)
  Receive Date: 20170612
  Receipt Date: 20170612
  Transmission Date: 20170830
  Serious: Yes (Other)
  Sender: FDA-Public Use
  Company Number: BR-009507513-1706BRA002929

PATIENT
  Age: 43 Year
  Sex: Female

DRUGS (5)
  1. ALENIA [Concomitant]
     Active Substance: BUDESONIDE\FORMOTEROL FUMARATE
     Indication: ASTHMA
     Dosage: 12-400 MCG; REPORTED AS INHALER, CAPSULES PER DAY
     Dates: start: 2011
  2. RIVOTRIL [Concomitant]
     Active Substance: CLONAZEPAM
     Indication: ANXIETY
  3. NASONEX [Suspect]
     Active Substance: MOMETASONE FUROATE
     Indication: ASTHMA
     Dosage: 1 SPRAY IN EACH NOSTRIL, ONCE DAILY AT 5:00 AM FROM MONDAY TO FRIDAY
     Dates: start: 201704
  4. RIVOTRIL [Concomitant]
     Active Substance: CLONAZEPAM
     Indication: DEPRESSION
     Dosage: UNTIL 15 DROPS WHEN SHE HAS ANXIETY; SOLUTION
     Dates: start: 2011
  5. NASONEX [Suspect]
     Active Substance: MOMETASONE FUROATE
     Dosage: 1 SPRAY IN EACH NOSTRIL, ONCE DAILY AT 5:00 AM FROM MONDAY TO FRIDAY
     Dates: start: 201704

REACTIONS (5)
  - Product quality issue [Unknown]
  - Alopecia [Not Recovered/Not Resolved]
  - Product use in unapproved indication [Unknown]
  - Incorrect dose administered [Unknown]
  - Neoplasm malignant [Not Recovered/Not Resolved]

NARRATIVE: CASE EVENT DATE: 201704
